FAERS Safety Report 5422894-3 (Version None)
Quarter: 2007Q3

REPORT INFORMATION
  Report Type: 
  Country: None (occurrence: None)
  Receive Date: 20070822
  Receipt Date: 20070810
  Transmission Date: 20080115
  Serious: Yes (Other)
  Sender: FDA-Public Use
  Company Number: BR-PFIZER INC-2007068126

PATIENT
  Sex: Female
  Weight: 56 kg

DRUGS (1)
  1. CHAMPIX [Suspect]
     Indication: SMOKING CESSATION THERAPY
     Route: 048

REACTIONS (8)
  - APHTHOUS STOMATITIS [None]
  - COORDINATION ABNORMAL [None]
  - FATIGUE [None]
  - MALAISE [None]
  - SKIN DISORDER [None]
  - SOMNOLENCE [None]
  - STOMACH DISCOMFORT [None]
  - THROAT IRRITATION [None]
